FAERS Safety Report 11922249 (Version 1)
Quarter: 2016Q1

REPORT INFORMATION
  Report Type: Spontaneous
  Country: US (occurrence: US)
  Receive Date: 20160115
  Receipt Date: 20160115
  Transmission Date: 20160526
  Serious: No
  Sender: FDA-Public Use
  Company Number: US-BAYER-2016-008006

PATIENT
  Age: 64 Year
  Sex: Female
  Weight: 50.79 kg

DRUGS (3)
  1. CLARITIN [Suspect]
     Active Substance: LORATADINE
  2. AFRIN NO DRIP SEVERE CONGESTION [Suspect]
     Active Substance: OXYMETAZOLINE HYDROCHLORIDE
     Indication: SEASONAL ALLERGY
     Dosage: 2 DF, QOD
     Route: 045
     Dates: start: 2011
  3. CLARITIN [Concomitant]
     Active Substance: LORATADINE
     Indication: NASAL CONGESTION

REACTIONS (2)
  - Product use issue [None]
  - Drug ineffective [None]
